FAERS Safety Report 18154565 (Version 1)
Quarter: 2020Q3

REPORT INFORMATION
  Report Type: Spontaneous
  Country: US (occurrence: US)
  Receive Date: 20200817
  Receipt Date: 20200817
  Transmission Date: 20201103
  Serious: No
  Sender: FDA-Public Use
  Company Number: US-SA-2020SA213398

PATIENT

DRUGS (1)
  1. KEVZARA [Suspect]
     Active Substance: SARILUMAB
     Indication: RHEUMATOID ARTHRITIS
     Dosage: 200 MG, QOW
     Route: 058

REACTIONS (13)
  - Asthenia [Unknown]
  - Mouth swelling [Unknown]
  - Oral pain [Unknown]
  - Peripheral swelling [Unknown]
  - Myalgia [Unknown]
  - Muscular weakness [Unknown]
  - Swollen tongue [Unknown]
  - Oropharyngeal pain [Unknown]
  - Sinus pain [Unknown]
  - Micturition urgency [Unknown]
  - Cough [Unknown]
  - Pyrexia [Unknown]
  - Fatigue [Unknown]
